FAERS Safety Report 7320035-9 (Version None)
Quarter: 2011Q1

REPORT INFORMATION
  Report Type: 
  Country: None (occurrence: None)
  Receive Date: 20110228
  Receipt Date: 20110228
  Transmission Date: 20110831
  Serious: Yes (Life-Threatening, Hospitalization)
  Sender: FDA-Public Use
  Company Number: HU-ELI_LILLY_AND_COMPANY-HU201006007344

PATIENT
  Sex: Male
  Weight: 99.3 kg

DRUGS (10)
  1. OTHER PHARMA COMPANY INV DRUG [Suspect]
     Indication: NON-SMALL CELL LUNG CANCER
     Dosage: 800 MG, TWICE IN 3 WEEKS
     Route: 042
     Dates: start: 20100330, end: 20100610
  2. DOXILEK [Concomitant]
     Dosage: 1 D/F, 2/D
     Dates: start: 19900101
  3. AMILOZID [Concomitant]
     Dosage: 1 D/F, EACH MORNING
     Dates: start: 19900101
  4. CETIRIZINE HCL [Concomitant]
     Dosage: 1 D/F, DAILY (1/D)
     Dates: start: 20100601
  5. GEMCITABINE HYDROCHLORIDE [Suspect]
     Indication: NON-SMALL CELL LUNG CANCER
     Dosage: 2625 MG, TWICE IN 3 WEEKS
     Route: 042
     Dates: start: 20100330, end: 20100610
  6. TRENTAL [Concomitant]
     Dosage: 1 D/F, 2/D
     Dates: start: 19900101
  7. BETALOC ZOK [Concomitant]
     Dosage: 50 MG, EACH MORNING
     Dates: start: 20000101
  8. TARDYFERON [Concomitant]
     Dosage: 1 D/F, 2/D
     Dates: start: 20100531
  9. CISPLATIN [Suspect]
     Indication: NON-SMALL CELL LUNG CANCER
     Dosage: 157 MG, ONCE IN 3 WEEKS
     Route: 042
     Dates: start: 20100330, end: 20100602
  10. RANITIDINE [Concomitant]
     Dosage: 300 MG, 2/D

REACTIONS (6)
  - THROMBOCYTOPENIA [None]
  - HYPERURICAEMIA [None]
  - PANCYTOPENIA [None]
  - LEUKOPENIA [None]
  - ASTHENIA [None]
  - ANAEMIA [None]
